FAERS Safety Report 5497161-2 (Version None)
Quarter: 2007Q4

REPORT INFORMATION
  Report Type: 
  Country: None (occurrence: None)
  Receive Date: 20071025
  Receipt Date: 20070323
  Transmission Date: 20080405
  Serious: No
  Sender: FDA-Public Use
  Company Number: A0608648A

PATIENT
  Age: 69 Year
  Sex: Male

DRUGS (20)
  1. ADVAIR DISKUS 100/50 [Suspect]
     Indication: EMPHYSEMA
     Dosage: 1PUFF TWICE PER DAY
     Route: 055
  2. LYRICA [Concomitant]
  3. DIAZEPAM [Concomitant]
  4. LEVITRA [Concomitant]
  5. LOVASTATIN [Concomitant]
  6. CHLORHEXIDINE GLUCONATE [Concomitant]
  7. VIAGRA [Concomitant]
  8. LACTULOSE [Concomitant]
  9. LISINOPRIL [Concomitant]
  10. WARFARIN SODIUM [Concomitant]
  11. OMEPRAZOLE [Concomitant]
  12. METFORMIN [Concomitant]
  13. DIGITEK [Concomitant]
  14. QUINIDINE HCL [Concomitant]
  15. MECLIZINE [Concomitant]
  16. DOCUSATE [Concomitant]
  17. ACETAMINOPHEN [Concomitant]
  18. GLUCOVANCE [Concomitant]
  19. MULTI-VITAMIN [Concomitant]
  20. FLUTICASONE PROPIONATE [Concomitant]

REACTIONS (5)
  - DIZZINESS [None]
  - HEADACHE [None]
  - INCREASED UPPER AIRWAY SECRETION [None]
  - PHARYNGOLARYNGEAL PAIN [None]
  - TREATMENT NONCOMPLIANCE [None]
